FAERS Safety Report 6598143-X (Version None)
Quarter: 2010Q1

REPORT INFORMATION
  Report Type: 
  Country: None (occurrence: None)
  Receive Date: 20100224
  Receipt Date: 20050301
  Transmission Date: 20100710
  Serious: No
  Sender: FDA-Public Use
  Company Number: US-ALLERGAN-200501651

PATIENT
  Age: 77 Year
  Sex: Female

DRUGS (1)
  1. BOTOX [Suspect]
     Indication: BLEPHAROSPASM
     Dosage: 80UNITS, PRN
     Route: 030
     Dates: start: 19891101

REACTIONS (4)
  - FLUSHING [None]
  - PRURITUS [None]
  - VISION BLURRED [None]
  - VISUAL IMPAIRMENT [None]
